FAERS Safety Report 10996931 (Version 1)
Quarter: 2015Q2

REPORT INFORMATION
  Report Type: Spontaneous
  Country: US (occurrence: None)
  Receive Date: 20150407
  Receipt Date: 20150407
  Transmission Date: 20150821
  Serious: Yes (Other)
  Sender: FDA-Public Use
  Company Number: None

PATIENT
  Age: 20 Month
  Sex: Male
  Weight: 10.89 kg

DRUGS (1)
  1. LEVOTHYROXINE [Suspect]
     Active Substance: LEVOTHYROXINE
     Indication: THYROID FUNCTION TEST ABNORMAL
     Dosage: 1/2 EVERYDAY QTY 15 PILLS ONCE DAILY TAKEN BY MOUTH
     Route: 048
     Dates: start: 20150326, end: 20150401

REACTIONS (6)
  - Urine odour abnormal [None]
  - Dermatitis diaper [None]
  - Flatulence [None]
  - Screaming [None]
  - Chromaturia [None]
  - Product substitution issue [None]

NARRATIVE: CASE EVENT DATE: 20150326
